FAERS Safety Report 5016515-1 (Version None)
Quarter: 2006Q2

REPORT INFORMATION
  Report Type: 
  Country: None (occurrence: None)
  Receive Date: 20060602
  Receipt Date: 20060524
  Transmission Date: 20061013
  Serious: Yes (Hospitalization)
  Sender: FDA-Public Use
  Company Number: FR-AVENTIS-200612948EU

PATIENT
  Age: 83 Year
  Sex: Female

DRUGS (2)
  1. FLUDEX [Suspect]
     Route: 048
     Dates: end: 20060201
  2. SECTRAL [Concomitant]

REACTIONS (2)
  - HYPOKALAEMIA [None]
  - TORSADE DE POINTES [None]
